FAERS Safety Report 25999097 (Version 4)
Quarter: 2025Q4

REPORT INFORMATION
  Report Type: Spontaneous
  Country: EU (occurrence: EU)
  Receive Date: 20251105
  Receipt Date: 20251121
  Transmission Date: 20260118
  Serious: Yes (Death, Hospitalization, Other)
  Sender: DAIICHI
  Company Number: EU-DSJP-DS-2025-173858-GR

PATIENT
  Age: 32 Year
  Sex: Female

DRUGS (1)
  1. ENHERTU [Suspect]
     Active Substance: FAM-TRASTUZUMAB DERUXTECAN-NXKI
     Indication: Invasive ductal breast carcinoma
     Dosage: 8 MG/KG, ONCE EVERY 3 WK
     Route: 042
     Dates: start: 202408

REACTIONS (3)
  - Septic shock [Fatal]
  - Respiratory tract infection [Fatal]
  - General physical health deterioration [Unknown]

NARRATIVE: CASE EVENT DATE: 20250101
